FAERS Safety Report 5139125-4 (Version None)
Quarter: 2006Q4

REPORT INFORMATION
  Report Type: 
  Country: None (occurrence: None)
  Receive Date: 20061030
  Receipt Date: 20060626
  Transmission Date: 20070319
  Serious: No
  Sender: FDA-Public Use
  Company Number: US-GLAXOSMITHKLINE-A0610321A

PATIENT
  Age: 58 Year
  Sex: Female

DRUGS (3)
  1. ADVAIR HFA [Suspect]
     Indication: DRUG USE FOR UNKNOWN INDICATION
     Dosage: 1PUFF TWICE PER DAY
     Route: 055
     Dates: start: 20060405
  2. SPIRIVA [Concomitant]
     Dosage: 1PUFF PER DAY
     Route: 055
     Dates: start: 20060405
  3. PREMARIN [Concomitant]
     Dosage: .625MG PER DAY
     Route: 048
     Dates: start: 20050523

REACTIONS (2)
  - DRUG INEFFECTIVE [None]
  - PHARMACEUTICAL PRODUCT COMPLAINT [None]
